FAERS Safety Report 16681946 (Version 1)
Quarter: 2019Q3

REPORT INFORMATION
  Report Type: Spontaneous
  Country: GB (occurrence: GB)
  Receive Date: 20190808
  Receipt Date: 20190808
  Transmission Date: 20191004
  Serious: Yes (Other)
  Sender: FDA-Public Use
  Company Number: GB-TEVA-2019-GB-1089320

PATIENT
  Age: 61 Year
  Sex: Female
  Weight: 66.67 kg

DRUGS (2)
  1. MEZAVANT XL [Concomitant]
     Active Substance: MESALAMINE
     Route: 065
  2. DOXYCYCLINE. [Suspect]
     Active Substance: DOXYCYCLINE
     Indication: LOWER RESPIRATORY TRACT INFECTION
     Dosage: 100 MILLIGRAM, 1 DAYS
     Route: 048
     Dates: start: 20190628, end: 20190630

REACTIONS (5)
  - Colitis ulcerative [Unknown]
  - Asthma [Unknown]
  - Pruritus [Unknown]
  - Dyspnoea [Unknown]
  - Diarrhoea [Not Recovered/Not Resolved]

NARRATIVE: CASE EVENT DATE: 20190629
